FAERS Safety Report 5114549-X (Version None)
Quarter: 2006Q3

REPORT INFORMATION
  Report Type: 
  Country: None (occurrence: None)
  Receive Date: 20060926
  Receipt Date: 20060116
  Transmission Date: 20061208
  Serious: Yes (Other)
  Sender: FDA-Public Use
  Company Number: PHBS2006BE00978

PATIENT
  Age: 76 Year
  Sex: Male

DRUGS (14)
  1. ZOMETA [Suspect]
     Indication: METASTASES TO BONE
     Dosage: UNK, UNK
     Dates: start: 20030818, end: 20051124
  2. ZOMETA [Suspect]
     Dosage: 2 MG
     Dates: start: 20050616, end: 20050616
  3. ZOMETA [Suspect]
     Dosage: 2 MG
     Dates: start: 20050914, end: 20050914
  4. VINBLASTINE [Concomitant]
     Route: 065
     Dates: start: 20030801, end: 20030929
  5. FLUOROURACIL [Concomitant]
     Route: 065
     Dates: start: 20031106, end: 20050101
  6. INTERFERON [Concomitant]
     Route: 065
     Dates: start: 20030828, end: 20030828
  7. INTERFERON [Concomitant]
     Route: 065
     Dates: start: 20030919, end: 20030919
  8. MEDROL [Concomitant]
     Route: 065
     Dates: start: 20030808
  9. APROVEL [Concomitant]
     Route: 065
  10. CORUNO [Concomitant]
     Route: 065
  11. SELOZOK [Concomitant]
     Route: 065
  12. DURAGESIC-100 [Concomitant]
     Route: 065
  13. ARCOXIA [Concomitant]
     Route: 065
  14. DAFALGAN [Concomitant]
     Route: 065

REACTIONS (7)
  - BLOOD CREATININE INCREASED [None]
  - BLOOD UREA INCREASED [None]
  - BONE DISORDER [None]
  - EATING DISORDER [None]
  - OSTEONECROSIS [None]
  - PURULENT DISCHARGE [None]
  - RENAL IMPAIRMENT [None]
